FAERS Safety Report 5656778-2 (Version None)
Quarter: 2008Q1

REPORT INFORMATION
  Report Type: 
  Country: None (occurrence: None)
  Receive Date: 20080219
  Receipt Date: 20071130
  Transmission Date: 20080703
  Serious: No
  Sender: FDA-Public Use
  Company Number: WAES 0712USA00305

PATIENT
  Age: 80 Year
  Sex: Male

DRUGS (6)
  1. JANUVIA [Suspect]
     Indication: DIABETES MELLITUS
     Dosage: 50 MG/DAILY/PO
     Route: 048
  2. AVALIDE [Concomitant]
  3. PRAVACHOL [Concomitant]
  4. TIAZAC [Concomitant]
  5. ZETIA [Concomitant]
  6. GLIPIZIDE [Concomitant]

REACTIONS (1)
  - MUSCULAR WEAKNESS [None]
